FAERS Safety Report 5709918-0 (Version None)
Quarter: 2008Q2

REPORT INFORMATION
  Report Type: 
  Country: None (occurrence: None)
  Receive Date: 20080418
  Receipt Date: 20070410
  Transmission Date: 20081010
  Serious: No
  Sender: FDA-Public Use
  Company Number: US-ASTRAZENECA-2007UW07030

PATIENT
  Age: 63 Year
  Sex: Female
  Weight: 64.9 kg

DRUGS (8)
  1. TOPROL-XL [Suspect]
     Indication: MYOCARDIAL INFARCTION
     Route: 048
     Dates: start: 20060701
  2. TOPROL-XL [Suspect]
     Indication: HYPERTENSION
     Route: 048
     Dates: start: 20060701
  3. NEXIUM [Concomitant]
  4. PLAVIX [Concomitant]
  5. REGLAN [Concomitant]
  6. BENADRYL [Concomitant]
  7. XANAX [Concomitant]
  8. BENTYL [Concomitant]

REACTIONS (1)
  - ASTHENIA [None]
